FAERS Safety Report 17425770 (Version 2)
Quarter: 2020Q1

REPORT INFORMATION
  Report Type: Report from Study
  Country: US (occurrence: US)
  Receive Date: 20200217
  Receipt Date: 20200304
  Transmission Date: 20200409
  Serious: Yes (Death)
  Sender: FDA-Public Use
  Company Number: US-ROCHE-2543195

PATIENT

DRUGS (5)
  1. GEMCITABINE. [Suspect]
     Active Substance: GEMCITABINE
     Indication: BREAST CANCER
     Route: 042
  2. PERTUZUMAB. [Suspect]
     Active Substance: PERTUZUMAB
     Indication: BREAST CANCER
     Route: 042
  3. PERTUZUMAB. [Suspect]
     Active Substance: PERTUZUMAB
     Route: 042
  4. TRASTUZUMAB. [Suspect]
     Active Substance: TRASTUZUMAB
     Indication: BREAST CANCER
     Route: 042
  5. TRASTUZUMAB. [Suspect]
     Active Substance: TRASTUZUMAB
     Route: 042

REACTIONS (1)
  - Disease progression [Fatal]
